FAERS Safety Report 24287668 (Version 1)
Quarter: 2024Q3

REPORT INFORMATION
  Report Type: Spontaneous
  Country: CN (occurrence: None)
  Receive Date: 20240905
  Receipt Date: 20240905
  Transmission Date: 20241017
  Serious: Yes (Hospitalization, Other)
  Sender: ASTRAZENECA
  Company Number: 2024A198210

PATIENT
  Age: 21967 Day
  Sex: Male
  Weight: 67 kg

DRUGS (2)
  1. BUDESONIDE [Suspect]
     Active Substance: BUDESONIDE
     Indication: Cough
     Route: 055
     Dates: start: 20240810, end: 20240815
  2. HEPARIN CALCIUM [Suspect]
     Active Substance: HEPARIN CALCIUM
     Indication: Thrombosis prophylaxis
     Route: 059
     Dates: start: 20240810, end: 20240815

REACTIONS (2)
  - Haemoptysis [Recovering/Resolving]
  - Lower respiratory tract inflammation [Recovering/Resolving]

NARRATIVE: CASE EVENT DATE: 20240815
